FAERS Safety Report 5240247-8 (Version None)
Quarter: 2007Q1

REPORT INFORMATION
  Report Type: 
  Country: None (occurrence: None)
  Receive Date: 20070219
  Receipt Date: 20070206
  Transmission Date: 20070707
  Serious: Yes (Hospitalization)
  Sender: FDA-Public Use
  Company Number: GB-NOVOPROD-260669

PATIENT
  Sex: Female
  Weight: 77 kg

DRUGS (3)
  1. KLIOVANCE [Suspect]
     Indication: DRUG USE FOR UNKNOWN INDICATION
     Dosage: 1 MG, QD
     Route: 048
     Dates: start: 20060801, end: 20061001
  2. KLIOFEM [Suspect]
     Indication: DRUG USE FOR UNKNOWN INDICATION
     Dosage: 2 MG, QD
     Route: 048
     Dates: start: 20061001, end: 20061225
  3. TRAMADOL HCL [Concomitant]
     Dosage: UNK, UNK
     Dates: start: 20051201, end: 20060801

REACTIONS (2)
  - DYSPNOEA [None]
  - WHEEZING [None]
